FAERS Safety Report 24603736 (Version 1)
Quarter: 2024Q4

REPORT INFORMATION
  Report Type: Spontaneous
  Country: GB (occurrence: None)
  Receive Date: 20241110
  Receipt Date: 20241110
  Transmission Date: 20250115
  Serious: Yes (Other)
  Sender: Public
  Company Number: None

PATIENT
  Age: 52 Year
  Sex: Male
  Weight: 110 kg

DRUGS (11)
  1. DELSTRIGO [Suspect]
     Active Substance: DORAVIRINE\LAMIVUDINE\TENOFOVIR DISOPROXIL FUMARATE
     Indication: HIV infection
  2. EFAVIRENZ [Suspect]
     Active Substance: EFAVIRENZ
  3. ATAZANAVIR [Concomitant]
     Active Substance: ATAZANAVIR
  4. RITONAVIR [Concomitant]
     Active Substance: RITONAVIR
  5. TRUVADA [Concomitant]
     Active Substance: EMTRICITABINE\TENOFOVIR DISOPROXIL FUMARATE
  6. AMLODIPINE [Concomitant]
     Active Substance: AMLODIPINE BESYLATE
  7. RAMIPRIL [Concomitant]
     Active Substance: RAMIPRIL
  8. ASPIRIN [Concomitant]
     Active Substance: ASPIRIN
  9. ALLOPURINOL [Concomitant]
     Active Substance: ALLOPURINOL
  10. VITAMINS [Concomitant]
     Active Substance: VITAMINS
  11. ZINC [Concomitant]

REACTIONS (4)
  - Rash [None]
  - Angina pectoris [None]
  - Aspartate aminotransferase increased [None]
  - Gamma-glutamyltransferase increased [None]

NARRATIVE: CASE EVENT DATE: 20240301
